FAERS Safety Report 14026832 (Version 1)
Quarter: 2017Q3

REPORT INFORMATION
  Report Type: Spontaneous
  Country: SE (occurrence: SE)
  Receive Date: 20170929
  Receipt Date: 20170929
  Transmission Date: 20171128
  Serious: No
  Sender: FDA-Public Use
  Company Number: SE-NOVEN PHARMACEUTICALS, INC.-SE2016002476

PATIENT

DRUGS (1)
  1. ESTRADIOL/NORETHISTERONE ACETATE [Suspect]
     Active Substance: ESTRADIOL\NORETHINDRONE ACETATE
     Indication: PRODUCT USED FOR UNKNOWN INDICATION
     Dosage: 50 ?G, UNKNOWN
     Route: 062

REACTIONS (4)
  - Wrong technique in product usage process [Unknown]
  - Malaise [Unknown]
  - Mental disorder [Unknown]
  - Drug administration error [Unknown]
